FAERS Safety Report 7333157-3 (Version None)
Quarter: 2011Q1

REPORT INFORMATION
  Report Type: 
  Country: None (occurrence: None)
  Receive Date: 20110222
  Receipt Date: 20101217
  Transmission Date: 20110831
  Serious: No
  Sender: FDA-Public Use
  Company Number: THQ2011A00548

PATIENT
  Age: 62 Year
  Sex: Male

DRUGS (1)
  1. LANSOPRAZOLE [Suspect]
     Dosage: PER ORAL
     Route: 048

REACTIONS (1)
  - UVEITIS [None]
